FAERS Safety Report 18147404 (Version 6)
Quarter: 2022Q1

REPORT INFORMATION
  Report Type: Report from Study
  Country: US (occurrence: US)
  Receive Date: 20200813
  Receipt Date: 20220312
  Transmission Date: 20220423
  Serious: Yes (Other)
  Sender: FDA-Public Use
  Company Number: NVSC2020US221287

PATIENT
  Sex: Female

DRUGS (6)
  1. ENTRESTO [Suspect]
     Active Substance: SACUBITRIL\VALSARTAN
     Indication: Cardiac failure chronic
     Dosage: 1 DF (49/51MG: SACUBITRIL 48.6 MG, VALSARTAN 51.4 MG), BID
     Route: 048
  2. ENTRESTO [Suspect]
     Active Substance: SACUBITRIL\VALSARTAN
     Dosage: 0.5 DF, BID
     Route: 048
  3. ENTRESTO [Suspect]
     Active Substance: SACUBITRIL\VALSARTAN
     Dosage: 1 DF (49/51MG: SACUBITRIL 48.6 MG, VALSARTAN 51.4 MG), BID
     Route: 048
  4. ENTRESTO [Suspect]
     Active Substance: SACUBITRIL\VALSARTAN
     Dosage: 1 DF (49/51MG: SACUBITRIL 48.6 MG, VALSARTAN 51.4 MG), BID
     Route: 048
     Dates: start: 2020
  5. ELIQUIS [Suspect]
     Active Substance: APIXABAN
     Indication: Atrial fibrillation
     Dosage: UNK
     Route: 065
  6. ELIQUIS [Suspect]
     Active Substance: APIXABAN
     Dosage: UNK UNK, QD
     Route: 065

REACTIONS (8)
  - Atrial fibrillation [Unknown]
  - Haemorrhage [Unknown]
  - Multiple fractures [Unknown]
  - SARS-CoV-2 test positive [Unknown]
  - Exposure to SARS-CoV-2 [Unknown]
  - Cardiac disorder [Unknown]
  - Wrong technique in product usage process [Unknown]
  - Off label use [Unknown]
